FAERS Safety Report 8206297-4 (Version None)
Quarter: 2012Q1

REPORT INFORMATION
  Report Type: 
  Country: None (occurrence: None)
  Receive Date: 20120313
  Receipt Date: 20120229
  Transmission Date: 20120608
  Serious: Yes (Hospitalization, Disabling)
  Sender: FDA-Public Use
  Company Number: PHHY2011US64384

PATIENT
  Sex: Male

DRUGS (1)
  1. MYFORTIC [Suspect]
     Indication: RENAL TRANSPLANT
     Dosage: 360 MG
     Route: 048
     Dates: start: 20110429

REACTIONS (3)
  - RENAL FAILURE [None]
  - HYPERTENSION [None]
  - HEPATIC FAILURE [None]
